FAERS Safety Report 18375578 (Version 1)
Quarter: 2020Q4

REPORT INFORMATION
  Report Type: Spontaneous
  Country: FR (occurrence: FR)
  Receive Date: 20201013
  Receipt Date: 20201013
  Transmission Date: 20210114
  Serious: Yes (Other)
  Sender: FDA-Public Use
  Company Number: FR-ACCORD-204878

PATIENT
  Age: 70 Year
  Sex: Male

DRUGS (4)
  1. PACLITAXEL/PACLITAXEL LIPOSOME [Suspect]
     Active Substance: PACLITAXEL
     Indication: SMALL CELL LUNG CANCER
  2. METYRAPONE/METYRAPONE TARTRATE [Concomitant]
     Active Substance: METYRAPONE
     Indication: CUSHING^S SYNDROME
  3. KETOCONAZOLE. [Interacting]
     Active Substance: KETOCONAZOLE
     Indication: CUSHING^S SYNDROME
  4. OSILODROSTAT [Concomitant]
     Active Substance: OSILODROSTAT
     Indication: CUSHING^S SYNDROME
     Dosage: INCREASED TO 4 MG/DAY OVER 14 DAYS

REACTIONS (2)
  - Drug interaction [Unknown]
  - Hepatitis [Unknown]
